FAERS Safety Report 23369436 (Version 1)
Quarter: 2024Q1

REPORT INFORMATION
  Report Type: Spontaneous
  Country: FR (occurrence: FR)
  Receive Date: 20240105
  Receipt Date: 20240105
  Transmission Date: 20240410
  Serious: Yes (Other)
  Sender: FDA-Public Use
  Company Number: FR-AFSSAPS-BR2023000811

PATIENT
  Age: 78 Year
  Sex: Male
  Weight: 72 kg

DRUGS (2)
  1. CIPROFLOXACIN [Suspect]
     Active Substance: CIPROFLOXACIN
     Indication: Pseudomonal bacteraemia
     Dosage: 500 MILLIGRAM, BID
     Route: 048
     Dates: start: 20230825, end: 20230831
  2. RIFAMPIN [Concomitant]
     Active Substance: RIFAMPIN
     Indication: Pseudomonal bacteraemia
     Dosage: 900 MILLIGRAM, DAILY
     Route: 048
     Dates: start: 20230823, end: 20230831

REACTIONS (1)
  - Tendon disorder [Not Recovered/Not Resolved]

NARRATIVE: CASE EVENT DATE: 20230831
